FAERS Safety Report 5379375-5 (Version None)
Quarter: 2007Q3

REPORT INFORMATION
  Report Type: 
  Country: None (occurrence: None)
  Receive Date: 20070702
  Receipt Date: 20070619
  Transmission Date: 20080115
  Serious: Yes (Hospitalization, Other)
  Sender: FDA-Public Use
  Company Number: 2007AL002512

PATIENT
  Age: 47 Year
  Sex: Male
  Weight: 79 kg

DRUGS (5)
  1. METFORMIN HYDROCHLORIDE [Suspect]
     Indication: TYPE 2 DIABETES MELLITUS
     Dosage: 1000 MG;BID;PO
     Route: 048
  2. DIVALPROEX SODIUM ER [Concomitant]
  3. CITALOPRAM HYDROBROMIDE [Concomitant]
  4. CLONAZEPAM [Concomitant]
  5. PENICILLIN G [Concomitant]

REACTIONS (21)
  - ALANINE AMINOTRANSFERASE INCREASED [None]
  - BLOOD CREATINE PHOSPHOKINASE MB INCREASED [None]
  - BLOOD CREATININE INCREASED [None]
  - BLOOD ETHANOL INCREASED [None]
  - BLOOD PH DECREASED [None]
  - BLOOD PRESSURE DIASTOLIC INCREASED [None]
  - BURNS THIRD DEGREE [None]
  - CARDIAC ENZYMES INCREASED [None]
  - CELLULITIS [None]
  - DEPRESSED LEVEL OF CONSCIOUSNESS [None]
  - HEART RATE INCREASED [None]
  - HYPOPNOEA [None]
  - INFECTION [None]
  - LABORATORY TEST ABNORMAL [None]
  - LACTIC ACIDOSIS [None]
  - MENTAL IMPAIRMENT [None]
  - PCO2 INCREASED [None]
  - PO2 DECREASED [None]
  - THERMAL BURN [None]
  - TROPONIN T INCREASED [None]
  - TYPE 1 DIABETES MELLITUS [None]
